FAERS Safety Report 6309394-3 (Version None)
Quarter: 2009Q3

REPORT INFORMATION
  Report Type: 
  Country: None (occurrence: None)
  Receive Date: 20090814
  Receipt Date: 20090811
  Transmission Date: 20100115
  Serious: Yes (Death)
  Sender: FDA-Public Use
  Company Number: US-AVENTIS-200914624US

PATIENT
  Sex: Female
  Weight: 66 kg

DRUGS (3)
  1. LOVENOX [Suspect]
     Indication: THROMBOSIS PROPHYLAXIS
     Dates: start: 20090522, end: 20090529
  2. LOVENOX [Suspect]
     Indication: PULMONARY EMBOLISM
     Dates: start: 20090522, end: 20090529
  3. ASPIRIN [Concomitant]
     Dates: start: 20020101

REACTIONS (3)
  - DRUG EXPOSURE DURING PREGNANCY [None]
  - INTRA-UTERINE DEATH [None]
  - URTICARIA [None]
